FAERS Safety Report 18792531 (Version 1)
Quarter: 2021Q1

REPORT INFORMATION
  Report Type: Spontaneous
  Country: DE (occurrence: DE)
  Receive Date: 20210127
  Receipt Date: 20210127
  Transmission Date: 20210419
  Serious: Yes (Hospitalization)
  Sender: FDA-Public Use
  Company Number: DE-SUN PHARMACEUTICAL INDUSTRIES LTD-2021RR-277766

PATIENT
  Sex: Male

DRUGS (6)
  1. 5?FU [Concomitant]
     Active Substance: FLUOROURACIL
     Indication: PRODUCT USED FOR UNKNOWN INDICATION
     Dosage: UNK
     Route: 065
  2. FORTECORTIN [Concomitant]
     Active Substance: DEXAMETHASONE
     Indication: PRODUCT USED FOR UNKNOWN INDICATION
     Dosage: 30 MIN VOR OXALIPLATIN ()
     Route: 065
  3. IVEMEND [Concomitant]
     Active Substance: FOSAPREPITANT DIMEGLUMINE
     Indication: PRODUCT USED FOR UNKNOWN INDICATION
     Dosage: 30 MIN VOR OXALIPLATIN ()
     Route: 065
  4. FOLINSAURE [Concomitant]
     Active Substance: LEUCOVORIN
     Indication: PRODUCT USED FOR UNKNOWN INDICATION
     Dosage: UNK
     Route: 065
  5. OXALIPLATIN SUN 5 MG/ML KONZENTRAT ZUR HERSTELLUNG EINER [Suspect]
     Active Substance: OXALIPLATIN
     Indication: PRODUCT USED FOR UNKNOWN INDICATION
     Dosage: DOSIERUNG INDIVIDUELLALLE 2 WOCHEN, TEILWEISE ?BER MONATEVOLUMEN/L?SUNGSMITTEL: GLUCOSE 5 % 500...
     Route: 042
  6. KEVATRIL [Concomitant]
     Active Substance: GRANISETRON HYDROCHLORIDE
     Indication: PRODUCT USED FOR UNKNOWN INDICATION
     Dosage: 30 MIN VOR OXALIPLATIN ()
     Route: 065

REACTIONS (4)
  - Hyperhidrosis [Unknown]
  - Restlessness [Unknown]
  - Hypertension [Unknown]
  - Product quality issue [Unknown]

NARRATIVE: CASE EVENT DATE: 20201020
